FAERS Safety Report 4534586-3 (Version None)
Quarter: 2004Q4

REPORT INFORMATION
  Report Type: 
  Country: None (occurrence: None)
  Receive Date: 20041214
  Receipt Date: 20040727
  Transmission Date: 20050328
  Serious: No
  Sender: FDA-Public Use
  Company Number: USA040773659

PATIENT
  Age: 73 Year
  Sex: Male

DRUGS (5)
  1. CIALIS [Suspect]
     Dosage: 20 MG
     Dates: start: 20040724
  2. ZOLOX [Concomitant]
  3. NORVASC [Concomitant]
  4. CASODEX [Concomitant]
  5. MULTI-VITAMIN [Concomitant]

REACTIONS (4)
  - ASTHENIA [None]
  - FEELING HOT [None]
  - PAIN EXACERBATED [None]
  - PAIN IN EXTREMITY [None]
